FAERS Safety Report 4718197-2 (Version None)
Quarter: 2005Q3

REPORT INFORMATION
  Report Type: 
  Country: None (occurrence: None)
  Receive Date: 20050718
  Receipt Date: 20050718
  Transmission Date: 20060218
  Serious: No
  Sender: FDA-Public Use
  Company Number: None

PATIENT
  Age: 47 Year
  Sex: Female

DRUGS (3)
  1. TOPAMAX [Suspect]
     Indication: HEADACHE
     Dosage: 25 MG PO
     Route: 048
     Dates: start: 20041017, end: 20041029
  2. ALEVE [Concomitant]
  3. RELAPAX [Concomitant]

REACTIONS (1)
  - ANGLE CLOSURE GLAUCOMA [None]
